FAERS Safety Report 6980027-6 (Version None)
Quarter: 2010Q3

REPORT INFORMATION
  Report Type: 
  Country: None (occurrence: None)
  Receive Date: 20100914
  Receipt Date: 20100908
  Transmission Date: 20110219
  Serious: Yes (Other)
  Sender: FDA-Public Use
  Company Number: CN-PFIZER INC-2010108643

PATIENT
  Age: 60 Year
  Sex: Male

DRUGS (1)
  1. SOLU-MEDROL [Suspect]
     Indication: OEDEMA
     Dosage: 40 MG, 1X/DAY

REACTIONS (3)
  - AGITATION [None]
  - INITIAL INSOMNIA [None]
  - RESTLESSNESS [None]
